FAERS Safety Report 5669014-8 (Version None)
Quarter: 2008Q1

REPORT INFORMATION
  Report Type: 
  Country: None (occurrence: None)
  Receive Date: 20080312
  Receipt Date: 20080312
  Transmission Date: 20080703
  Serious: Yes (Hospitalization)
  Sender: FDA-Public Use
  Company Number: None

PATIENT
  Age: 51 Year
  Sex: Female
  Weight: 89.3586 kg

DRUGS (2)
  1. DILANTIN [Suspect]
     Indication: CONVULSION
     Dosage: 2 100 MG 2 X DAILY PO
     Route: 048
     Dates: start: 20060604, end: 20060717
  2. PHENYTOIN [Suspect]
     Indication: CONVULSION
     Dosage: 2 30 MG 2 X DAILY PO
     Route: 048
     Dates: start: 20060604, end: 20060717

REACTIONS (2)
  - NO THERAPEUTIC RESPONSE [None]
  - RASH [None]
